FAERS Safety Report 5422868-2 (Version None)
Quarter: 2007Q3

REPORT INFORMATION
  Report Type: 
  Country: None (occurrence: None)
  Receive Date: 20070727
  Receipt Date: 20070601
  Transmission Date: 20080115
  Serious: No
  Sender: FDA-Public Use
  Company Number: CLOF-10549

PATIENT
  Age: 24 Year

DRUGS (5)
  1. CLOFARABINE. MFR: GENZYME [Suspect]
     Indication: T-CELL LYMPHOMA
     Dosage: 42 MG/M2
     Dates: start: 20070530
  2. CAMPATH [Suspect]
     Indication: T-CELL LYMPHOMA
     Dates: start: 20070529, end: 20070529
  3. CAMPATH [Suspect]
     Indication: T-CELL LYMPHOMA
     Dosage: 10 MG QD
     Dates: start: 20070530, end: 20070530
  4. CAMPATH [Suspect]
     Indication: T-CELL LYMPHOMA
     Dosage: 30 MG QD
     Dates: start: 20070531
  5. CYTARABINE [Suspect]
     Indication: T-CELL LYMPHOMA
     Dosage: 1000 MG/M2
     Dates: start: 20070530

REACTIONS (1)
  - ERYTHEMA [None]
